FAERS Safety Report 8247824-0 (Version None)
Quarter: 2012Q1

REPORT INFORMATION
  Report Type: 
  Country: None (occurrence: None)
  Receive Date: 20120330
  Receipt Date: 20120320
  Transmission Date: 20120608
  Serious: Yes (Hospitalization)
  Sender: FDA-Public Use
  Company Number: FR-PFIZER INC-2012073233

PATIENT
  Age: 70 Year
  Sex: Male

DRUGS (2)
  1. AXITINIB [Suspect]
     Dosage: 7 MG, 2X/DAY
     Route: 048
     Dates: start: 20120307, end: 20120313
  2. AXITINIB [Suspect]
     Indication: COLORECTAL CANCER METASTATIC
     Dosage: 5 MG, 2X/DAY
     Route: 048
     Dates: start: 20120221, end: 20120227

REACTIONS (3)
  - ILEUS [None]
  - VOMITING [None]
  - ABDOMINAL PAIN [None]
